FAERS Safety Report 6276018-3 (Version None)
Quarter: 2009Q3

REPORT INFORMATION
  Report Type: 
  Country: None (occurrence: None)
  Receive Date: 20090720
  Receipt Date: 20090706
  Transmission Date: 20100115
  Serious: Yes (Other)
  Sender: FDA-Public Use
  Company Number: 2009070019

PATIENT
  Sex: Female
  Weight: 60 kg

DRUGS (1)
  1. AZELASTINE HCL [Suspect]
     Indication: RHINITIS ALLERGIC
     Dosage: IN

REACTIONS (3)
  - DIZZINESS [None]
  - FALL [None]
  - LOSS OF CONSCIOUSNESS [None]
